FAERS Safety Report 8437033-4 (Version None)
Quarter: 2012Q2

REPORT INFORMATION
  Report Type: 
  Country: None (occurrence: None)
  Receive Date: 20120614
  Receipt Date: 20120612
  Transmission Date: 20120825
  Serious: Yes (Death, Life-Threatening, Other)
  Sender: FDA-Public Use
  Company Number: CA-ELI_LILLY_AND_COMPANY-CA201204000422

PATIENT
  Sex: Female

DRUGS (9)
  1. ADCIRCA [Suspect]
     Dosage: 10 MG, QID
  2. POTASSIUM ACETATE [Concomitant]
     Dosage: UNK
  3. CRESTOR [Concomitant]
     Dosage: 10 MG, QD
  4. GLICLAZIDE [Concomitant]
     Dosage: 160 MG, BID
  5. FUROSEMIDE [Concomitant]
     Dosage: 40 MG, QD
  6. LANTUS [Concomitant]
     Dosage: UNK
  7. ADCIRCA [Suspect]
     Indication: PULMONARY ARTERIAL HYPERTENSION
     Dosage: 10 MG, BID
     Route: 048
  8. SYMBICORT [Concomitant]
     Dosage: 2 DF, BID
     Route: 055
  9. ASPIRIN [Concomitant]
     Dosage: 81 MG, QD

REACTIONS (19)
  - ARRHYTHMIA SUPRAVENTRICULAR [None]
  - RIGHT VENTRICULAR FAILURE [None]
  - HEART RATE INCREASED [None]
  - VOMITING [None]
  - CARDIAC ARREST [None]
  - ARRHYTHMIA [None]
  - BRADYCARDIA [None]
  - MYOCARDIAL INFARCTION [None]
  - BLOOD GLUCOSE INCREASED [None]
  - COUGH [None]
  - OEDEMA PERIPHERAL [None]
  - HYPOTENSION [None]
  - HYPERTHYROIDISM [None]
  - HYPERGLYCAEMIA [None]
  - SYNCOPE [None]
  - EPISTAXIS [None]
  - NAUSEA [None]
  - ATRIAL TACHYCARDIA [None]
  - DIZZINESS [None]
